FAERS Safety Report 10612863 (Version 2)
Quarter: 2015Q1

REPORT INFORMATION
  Report Type: Report from Study
  Country: IL (occurrence: IL)
  Receive Date: 20141127
  Receipt Date: 20150115
  Transmission Date: 20150720
  Serious: Yes (Death)
  Sender: FDA-Public Use
  Company Number: IL-009507513-1411ISR011027

PATIENT
  Age: 8 Year
  Sex: Female

DRUGS (2)
  1. PEMBROLIZUMAB. [Suspect]
     Active Substance: PEMBROLIZUMAB
     Dosage: UNK, DOSE 2 : 3 WEEKS LATER
     Route: 042
     Dates: start: 2014, end: 2014
  2. PEMBROLIZUMAB. [Suspect]
     Active Substance: PEMBROLIZUMAB
     Indication: HEAD AND NECK CANCER METASTATIC
     Dosage: UNK, DOSE 1
     Route: 042
     Dates: start: 2014, end: 2014

REACTIONS (4)
  - Therapeutic response unexpected [Unknown]
  - Pyrexia [Unknown]
  - Therapeutic response delayed [Unknown]
  - Death [Fatal]

NARRATIVE: CASE EVENT DATE: 2014
